FAERS Safety Report 5120514-9 (Version None)
Quarter: 2006Q4

REPORT INFORMATION
  Report Type: 
  Country: None (occurrence: None)
  Receive Date: 20061004
  Receipt Date: 20060925
  Transmission Date: 20070319
  Serious: Yes (Hospitalization)
  Sender: FDA-Public Use
  Company Number: FR-AVENTIS-200613297FR

PATIENT
  Age: 44 Year
  Sex: Male
  Weight: 88 kg

DRUGS (21)
  1. FLAGYL [Suspect]
     Indication: APLASIA
     Route: 048
     Dates: start: 20060617, end: 20060705
  2. FLAGYL [Suspect]
     Indication: PYREXIA
     Route: 048
     Dates: start: 20060617, end: 20060705
  3. AMBISOME [Suspect]
     Indication: ORAL FUNGAL INFECTION
     Route: 042
     Dates: start: 20060613, end: 20060617
  4. ARACYTINE [Suspect]
     Indication: MYELOID LEUKAEMIA
     Route: 042
     Dates: start: 20060609, end: 20060616
  5. ARACYTINE [Suspect]
     Route: 042
     Dates: start: 20060717, end: 20060724
  6. CIFLOX [Concomitant]
     Indication: LUNG DISORDER
     Route: 042
     Dates: start: 20060623, end: 20060629
  7. CERUBIDINE [Concomitant]
     Indication: MYELOID LEUKAEMIA
     Route: 042
     Dates: start: 20060609, end: 20060611
  8. CERUBIDINE [Concomitant]
     Route: 042
     Dates: start: 20060717, end: 20060724
  9. TRIFLUCAN [Concomitant]
     Indication: ORAL FUNGAL INFECTION
     Dates: start: 20060612, end: 20060612
  10. TRIFLUCAN [Concomitant]
     Dates: start: 20060821, end: 20060905
  11. ACYCLOVIR [Concomitant]
     Indication: APLASIA
     Dates: start: 20060619, end: 20060705
  12. ACYCLOVIR [Concomitant]
     Dates: start: 20060821
  13. ACYCLOVIR [Concomitant]
     Indication: PYREXIA
     Dates: start: 20060619, end: 20060705
  14. ACYCLOVIR [Concomitant]
     Dates: start: 20060821
  15. CANCIDAS [Concomitant]
     Indication: APLASIA
     Dates: start: 20060617, end: 20060705
  16. CANCIDAS [Concomitant]
     Dates: start: 20060706, end: 20060706
  17. CANCIDAS [Concomitant]
     Dates: start: 20060717
  18. CANCIDAS [Concomitant]
     Indication: PYREXIA
     Dates: start: 20060617, end: 20060705
  19. CANCIDAS [Concomitant]
     Dates: start: 20060706, end: 20060706
  20. CANCIDAS [Concomitant]
     Dates: start: 20060717
  21. ALLOPURINOL [Concomitant]
     Dates: start: 20060612

REACTIONS (8)
  - CHOLESTASIS [None]
  - CYTOLYTIC HEPATITIS [None]
  - DIARRHOEA [None]
  - DRUG TOXICITY [None]
  - FUNGAL OESOPHAGITIS [None]
  - HEPATITIS CHOLESTATIC [None]
  - HEPATOMEGALY [None]
  - HEPATOSPLENOMEGALY [None]
